FAERS Safety Report 4748498-3 (Version None)
Quarter: 2005Q3

REPORT INFORMATION
  Report Type: 
  Country: None (occurrence: None)
  Receive Date: 20050817
  Receipt Date: 20050811
  Transmission Date: 20060218
  Serious: Yes (Death, Life-Threatening, Hospitalization, Other)
  Sender: FDA-Public Use
  Company Number: 2005113753

PATIENT
  Age: 16 Year
  Sex: Female

DRUGS (2)
  1. ZOLOFT [Suspect]
     Indication: DEPRESSION
     Dosage: 100 MG
     Dates: start: 20021122
  2. DEXTROAMPHETAMINE SULFATE (DEXTROAMPHETAMINE SULFATE) [Concomitant]

REACTIONS (20)
  - ABNORMAL BEHAVIOUR [None]
  - ABNORMAL DREAMS [None]
  - AGGRESSION [None]
  - AGITATION [None]
  - ANGER [None]
  - COMPLETED SUICIDE [None]
  - CONDITION AGGRAVATED [None]
  - CONFUSIONAL STATE [None]
  - CRYING [None]
  - DEPRESSED MOOD [None]
  - FEAR [None]
  - HALLUCINATION, AUDITORY [None]
  - INJURY ASPHYXIATION [None]
  - INTENTIONAL MISUSE [None]
  - LOSS OF CONSCIOUSNESS [None]
  - MOOD SWINGS [None]
  - MULTIPLE DRUG OVERDOSE [None]
  - SCHOOL REFUSAL [None]
  - SOCIAL AVOIDANT BEHAVIOUR [None]
  - TREATMENT NONCOMPLIANCE [None]
